FAERS Safety Report 24300240 (Version 1)
Quarter: 2024Q3

REPORT INFORMATION
  Report Type: Spontaneous
  Country: GB (occurrence: GB)
  Receive Date: 20240909
  Receipt Date: 20240909
  Transmission Date: 20241017
  Serious: Yes (Hospitalization, Other)
  Sender: SUNOVION
  Company Number: GB-BIAL-BIAL-17304

PATIENT

DRUGS (1)
  1. ESLICARBAZEPINE ACETATE [Suspect]
     Active Substance: ESLICARBAZEPINE ACETATE
     Indication: Seizure
     Dosage: 200 MG, BID
     Route: 065
     Dates: start: 20240812

REACTIONS (2)
  - Epilepsy [Recovering/Resolving]
  - Cardiac arrest [Recovering/Resolving]
